FAERS Safety Report 20807488 (Version 2)
Quarter: 2022Q2

REPORT INFORMATION
  Report Type: Report from Study
  Country: MC (occurrence: MC)
  Receive Date: 20220510
  Receipt Date: 20220520
  Transmission Date: 20220721
  Serious: Yes (Hospitalization)
  Sender: FDA-Public Use
  Company Number: MC-JNJFOC-20220508378

PATIENT
  Age: 45 Year
  Sex: Female
  Weight: 72 kg

DRUGS (8)
  1. SPRAVATO [Suspect]
     Active Substance: ESKETAMINE
     Indication: Depression
     Dates: start: 20210222
  2. TRANXENE [Concomitant]
     Active Substance: CLORAZEPATE DIPOTASSIUM
     Dosage: ONGOING
     Route: 065
     Dates: start: 20210511
  3. PRAZEPAM [Concomitant]
     Active Substance: PRAZEPAM
     Route: 065
     Dates: start: 20210511
  4. TEGRETOL [Concomitant]
     Active Substance: CARBAMAZEPINE
     Dosage: ONGOING
     Route: 065
  5. LYRICA [Concomitant]
     Active Substance: PREGABALIN
     Dosage: ONGOING
     Route: 065
  6. LEVOTHYROXINE [Concomitant]
     Active Substance: LEVOTHYROXINE
     Dosage: ONGOING
     Route: 065
  7. CLOZAPINE [Concomitant]
     Active Substance: CLOZAPINE
     Dosage: ONGOING
     Route: 065
  8. LOXAPINE [Concomitant]
     Active Substance: LOXAPINE
     Dosage: 60 DROPS
     Route: 065

REACTIONS (1)
  - Depression [Recovered/Resolved]

NARRATIVE: CASE EVENT DATE: 20210704
